FAERS Safety Report 10575367 (Version 1)
Quarter: 2014Q4

REPORT INFORMATION
  Report Type: Spontaneous
  Country: US (occurrence: None)
  Receive Date: 20141107
  Receipt Date: 20141107
  Transmission Date: 20150529
  Serious: Yes (Hospitalization)
  Sender: FDA-Public Use
  Company Number: INS201410-000237

PATIENT
  Sex: Female

DRUGS (1)
  1. SUBSYS [Suspect]
     Active Substance: FENTANYL
     Route: 060

REACTIONS (1)
  - Hospitalisation [None]
